FAERS Safety Report 9254371 (Version 1)
Quarter: 2013Q1

REPORT INFORMATION
  Report Type: Spontaneous
  Country: US (occurrence: None)
  Receive Date: 20121210
  Receipt Date: 20121210
  Transmission Date: 20140127
  Serious: No
  Sender: FDA-Public Use
  Company Number: 1210USA10030

PATIENT
  Age: 66 Year
  Sex: Male

DRUGS (1)
  1. ZIOPTAN [Suspect]
     Indication: GLAUCOMA
     Dosage: UNK, OPHTHALMIC
     Route: 047
     Dates: start: 201203, end: 20121016

REACTIONS (1)
  - Dyspnoea [None]
